FAERS Safety Report 11951500 (Version 2)
Quarter: 2016Q1

REPORT INFORMATION
  Report Type: Spontaneous
  Country: US (occurrence: US)
  Receive Date: 20160126
  Receipt Date: 20160201
  Transmission Date: 20160526
  Serious: Yes (Other)
  Sender: FDA-Public Use
  Company Number: US-NOVOPROD-477637

PATIENT
  Age: 65 Year
  Sex: Female
  Weight: 89.34 kg

DRUGS (2)
  1. NOVOLOG [Suspect]
     Active Substance: INSULIN ASPART
     Indication: TYPE 2 DIABETES MELLITUS
     Dosage: SLIDING SCALE
     Route: 058
  2. LEVEMIR [Suspect]
     Active Substance: INSULIN DETEMIR
     Indication: TYPE 2 DIABETES MELLITUS
     Dosage: 50 U, QD
     Route: 058
     Dates: end: 201509

REACTIONS (3)
  - Neuropathic arthropathy [Recovered/Resolved]
  - Osteomyelitis [Recovered/Resolved]
  - Haemorrhoid operation [Recovered/Resolved]

NARRATIVE: CASE EVENT DATE: 201402
